FAERS Safety Report 14241423 (Version 11)
Quarter: 2019Q1

REPORT INFORMATION
  Report Type: Spontaneous
  Country: FR (occurrence: FR)
  Receive Date: 20171130
  Receipt Date: 20190213
  Transmission Date: 20190417
  Serious: Yes (Hospitalization)
  Sender: FDA-Public Use
  Company Number: FR-ROCHE-2031433

PATIENT
  Age: 75 Year
  Sex: Male
  Weight: 88 kg

DRUGS (26)
  1. VALIUM [Suspect]
     Active Substance: DIAZEPAM
     Indication: DEPRESSIVE SYMPTOM
     Route: 048
     Dates: start: 20170101, end: 20170927
  2. DAFALGAN [Suspect]
     Active Substance: ACETAMINOPHEN
     Route: 048
     Dates: start: 20171019
  3. IRBESARTAN. [Suspect]
     Active Substance: IRBESARTAN
     Route: 048
     Dates: start: 2015, end: 20171006
  4. MIRTAZAPINE. [Suspect]
     Active Substance: MIRTAZAPINE
     Indication: DEPRESSIVE SYMPTOM
     Route: 048
     Dates: start: 20170910
  5. DAFALGAN [Suspect]
     Active Substance: ACETAMINOPHEN
     Indication: PAIN
     Route: 048
     Dates: start: 20171009
  6. PANTOPRAZOLE [Suspect]
     Active Substance: PANTOPRAZOLE
     Route: 048
     Dates: start: 2015, end: 20171025
  7. AMLODIPINE BESILATE [Suspect]
     Active Substance: AMLODIPINE BESYLATE
     Indication: HYPERTENSION
     Route: 048
     Dates: start: 20170825, end: 20170927
  8. DIFFU K [Suspect]
     Active Substance: POTASSIUM CHLORIDE
     Indication: HYPOKALAEMIA
     Dosage: 3 DF DAILY (2-1-0), BID
     Route: 048
     Dates: start: 20170824, end: 20171003
  9. VALIUM [Suspect]
     Active Substance: DIAZEPAM
     Route: 048
     Dates: start: 20170101, end: 20170927
  10. METFORMIN HYDROCHLORIDE. [Suspect]
     Active Substance: METFORMIN HYDROCHLORIDE
     Indication: DIABETES MELLITUS
     Route: 048
     Dates: start: 20170824, end: 20171025
  11. ALPRAZOLAM. [Suspect]
     Active Substance: ALPRAZOLAM
     Indication: DEPRESSIVE SYMPTOM
     Route: 048
     Dates: start: 20170928
  12. ALPRAZOLAM. [Suspect]
     Active Substance: ALPRAZOLAM
     Dosage: 0.75 MG THREE TIMES A DAY
     Route: 048
     Dates: start: 20170928
  13. TERBUTALINE SULPHATE [Suspect]
     Active Substance: TERBUTALINE SULFATE
     Route: 055
  14. BISOPROLOL HEMIFUMARATE [Suspect]
     Active Substance: BISOPROLOL FUMARATE
     Indication: HYPERTENSION
     Route: 048
     Dates: start: 20171006
  15. FUROSEMIDE. [Suspect]
     Active Substance: FUROSEMIDE
     Dosage: 2 OT, QD
     Route: 048
  16. XARELTO [Suspect]
     Active Substance: RIVAROXABAN
     Indication: ATRIAL FIBRILLATION
     Route: 048
     Dates: start: 20170824, end: 20171025
  17. SEROPLEX [Suspect]
     Active Substance: ESCITALOPRAM OXALATE
     Indication: DEPRESSIVE SYMPTOM
     Route: 048
     Dates: start: 20170101, end: 20170910
  18. TAVANIC [Suspect]
     Active Substance: LEVOFLOXACIN
     Indication: LUNG DISORDER
     Route: 048
     Dates: start: 20170905, end: 20170919
  19. PANTOPRAZOLE [Suspect]
     Active Substance: PANTOPRAZOLE
     Indication: GASTROOESOPHAGEAL REFLUX DISEASE
     Route: 048
     Dates: start: 20150101, end: 20171025
  20. VALIUM [Suspect]
     Active Substance: DIAZEPAM
     Route: 048
     Dates: start: 20170101, end: 20170927
  21. FUROSEMIDE. [Suspect]
     Active Substance: FUROSEMIDE
     Indication: HYPERTENSION
     Dosage: 30 MG DAILY (2-1-0), 2 TIMES A DAY
     Route: 048
     Dates: start: 20170825, end: 20171003
  22. TERBUTALINE SULPHATE [Suspect]
     Active Substance: TERBUTALINE SULFATE
     Indication: LUNG DISORDER
     Route: 055
     Dates: start: 20170914, end: 20170921
  23. IRBESARTAN. [Suspect]
     Active Substance: IRBESARTAN
     Indication: HYPERTENSION
     Route: 048
     Dates: start: 20150101, end: 20171006
  24. NEFOPAM HYDROCHLORIDE [Suspect]
     Active Substance: NEFOPAM HYDROCHLORIDE
     Route: 048
  25. NEFOPAM HYDROCHLORIDE [Suspect]
     Active Substance: NEFOPAM HYDROCHLORIDE
     Indication: PAIN
     Route: 048
  26. COLCHICINE OPOCALCIUM [Suspect]
     Active Substance: COLCHICINE
     Indication: GOUT
     Route: 048
     Dates: start: 20170914, end: 20170921

REACTIONS (1)
  - Agranulocytosis [Recovered/Resolved]

NARRATIVE: CASE EVENT DATE: 20171024
